FAERS Safety Report 18979843 (Version 1)
Quarter: 2021Q1

REPORT INFORMATION
  Report Type: Spontaneous
  Country: GB (occurrence: GB)
  Receive Date: 20210308
  Receipt Date: 20210308
  Transmission Date: 20210420
  Serious: Yes (Other)
  Sender: FDA-Public Use
  Company Number: GB-EMCURE PHARMACEUTICALS LTD-2021-EPL-000642

PATIENT
  Age: 76 Year
  Sex: Female
  Weight: 79 kg

DRUGS (5)
  1. OTOMIZE [Concomitant]
     Indication: EAR DISCOMFORT
     Dosage: 5 MILLILITER, TID ONE SPRAY TO BE USED IN THE AFFECTED EAR(S)
     Dates: start: 20210106
  2. PREDNISOLONE. [Concomitant]
     Active Substance: PREDNISOLONE
     Dosage: 30 MILLIGRAM, QD
     Dates: start: 20210118
  3. BETNOVATE [Concomitant]
     Active Substance: BETAMETHASONE
     Dosage: 60 GRAM, BID APPLY THINLY
     Dates: start: 20201112, end: 20201225
  4. BETNOVATE [Concomitant]
     Active Substance: BETAMETHASONE
     Dosage: 60 GRAM, BID
     Dates: start: 20210118
  5. LISINOPRIL. [Suspect]
     Active Substance: LISINOPRIL
     Indication: PRODUCT USED FOR UNKNOWN INDICATION
     Dosage: 2.5 MILLIGRAM, QD
     Dates: start: 20210118

REACTIONS (3)
  - Skin irritation [Unknown]
  - Skin burning sensation [Unknown]
  - Skin exfoliation [Unknown]
